FAERS Safety Report 7414055-3 (Version None)
Quarter: 2011Q2

REPORT INFORMATION
  Report Type: 
  Country: None (occurrence: None)
  Receive Date: 20110414
  Receipt Date: 20110407
  Transmission Date: 20111010
  Serious: No
  Sender: FDA-Public Use
  Company Number: US-PFIZER INC-2011077871

PATIENT
  Sex: Female

DRUGS (2)
  1. EFFEXOR [Suspect]
     Indication: HOT FLUSH
     Dosage: 37.5 MG, UNK
  2. EFFEXOR [Suspect]
     Indication: ANXIETY

REACTIONS (2)
  - HYPOAESTHESIA [None]
  - ASTHENIA [None]
